FAERS Safety Report 5461038-9 (Version None)
Quarter: 2007Q3

REPORT INFORMATION
  Report Type: 
  Country: None (occurrence: None)
  Receive Date: 20070810
  Receipt Date: 20060913
  Transmission Date: 20080115
  Serious: Yes (Other)
  Sender: FDA-Public Use
  Company Number: 200614338BWH

PATIENT
  Age: 74 Year
  Sex: Female

DRUGS (2)
  1. TRASYLOL [Suspect]
     Indication: SURGERY
     Dosage: 200 ML, ONCE, INTRAVENOUS; 200 ML, ONCE, INTRAVENOUS
     Route: 042
     Dates: start: 20060207
  2. TRASYLOL [Suspect]
     Indication: SURGERY
     Dosage: 200 ML, ONCE, INTRAVENOUS; 200 ML, ONCE, INTRAVENOUS
     Route: 042
     Dates: start: 20060207

REACTIONS (1)
  - RENAL FAILURE ACUTE [None]
